FAERS Safety Report 18282025 (Version 2)
Quarter: 2020Q3

REPORT INFORMATION
  Report Type: Spontaneous
  Country: US (occurrence: US)
  Receive Date: 20200918
  Receipt Date: 20200919
  Transmission Date: 20201103
  Serious: No
  Sender: FDA-Public Use
  Company Number: NVSC2020US254624

PATIENT

DRUGS (1)
  1. XIIDRA [Suspect]
     Active Substance: LIFITEGRAST
     Indication: DRY EYE
     Dosage: 1 DRP, BID
     Route: 047

REACTIONS (3)
  - Ocular hyperaemia [Unknown]
  - Rash [Unknown]
  - Eyelid rash [Unknown]
